FAERS Safety Report 7428859-4 (Version None)
Quarter: 2011Q2

REPORT INFORMATION
  Report Type: 
  Country: None (occurrence: None)
  Receive Date: 20110413
  Receipt Date: 20110330
  Transmission Date: 20111010
  Serious: Yes (Hospitalization)
  Sender: FDA-Public Use
  Company Number: 030209

PATIENT
  Sex: Male

DRUGS (7)
  1. TAREG (TAREG) [Suspect]
     Dosage: 80 MG QD ORAL
     Route: 048
     Dates: start: 20100503, end: 20100530
  2. DEPAKENE [Suspect]
     Indication: EPILEPSY
     Dosage: 500 MG BID ORAL
     Route: 048
     Dates: start: 20100519, end: 20100528
  3. ZYLORIC /00003301/ [Concomitant]
  4. AMLODIPINE BESYLATE [Concomitant]
  5. URBANYL (URBANYL) (NOT SPECIFIED) [Suspect]
     Dosage: 1 DF ORAL
     Route: 048
     Dates: start: 20100425, end: 20100515
  6. KEPPRA [Suspect]
     Indication: EPILEPSY
     Dosage: 500 MG TID ORAL
     Route: 048
     Dates: start: 20100425, end: 20100525
  7. HYDREA [Concomitant]

REACTIONS (6)
  - HALLUCINATION [None]
  - AGGRESSION [None]
  - DISTURBANCE IN ATTENTION [None]
  - CONFUSIONAL STATE [None]
  - ABNORMAL BEHAVIOUR [None]
  - DISORIENTATION [None]
